FAERS Safety Report 18887490 (Version 3)
Quarter: 2021Q1

REPORT INFORMATION
  Report Type: Spontaneous
  Country: JP (occurrence: JP)
  Receive Date: 20210212
  Receipt Date: 20210318
  Transmission Date: 20210420
  Serious: Yes (Other)
  Sender: FDA-Public Use
  Company Number: JP-ANIPHARMA-2021-JP-000056

PATIENT
  Age: 47 Year
  Sex: Female

DRUGS (12)
  1. CANDESARTAN CILEXETIL. [Suspect]
     Active Substance: CANDESARTAN CILEXETIL
     Indication: HYPERTENSION
     Dosage: 4 MG QD
     Route: 048
  2. BELSOMRA [Concomitant]
     Active Substance: SUVOREXANT
     Dosage: 20 MG QD
     Route: 048
     Dates: start: 20170307
  3. NO MATCH [Concomitant]
     Active Substance: UNSPECIFIED INGREDIENT
     Dosage: 7.5 G QD
     Route: 048
     Dates: start: 20160112
  4. RISPERIDONE. [Concomitant]
     Active Substance: RISPERIDONE
     Dosage: 3 MG QD
     Route: 048
     Dates: start: 20150306
  5. ROZEREM [Concomitant]
     Active Substance: RAMELTEON
     Dosage: 8 MG QD
     Route: 048
     Dates: start: 20170724
  6. MAGNESIUM OXIDE. [Concomitant]
     Active Substance: MAGNESIUM OXIDE
     Dosage: 2.01 G QD
     Route: 048
     Dates: start: 20190129
  7. INTUNIV [Suspect]
     Active Substance: GUANFACINE HYDROCHLORIDE
     Dosage: 1 MG QD / 2 MG QD / 3 MG QD / 4 MG QD / 5 MG QD/ 3 MG QD / 1 MG QD / 4 MG QD / 3 MG QD
     Route: 048
     Dates: start: 20200108
  8. NO MATCH [Concomitant]
     Active Substance: UNSPECIFIED INGREDIENT
     Dosage: 6 G QD
     Route: 048
     Dates: start: 20160112
  9. OLOPATADINE HYDROCHLORIDE. [Concomitant]
     Active Substance: OLOPATADINE HYDROCHLORIDE
     Dosage: 10 MG QD
     Route: 048
     Dates: start: 20200226
  10. AMLODIPINE [Suspect]
     Active Substance: AMLODIPINE BESYLATE
     Dosage: 2.5 MG QD
     Route: 048
     Dates: start: 20110722
  11. LAMICTAL [Concomitant]
     Active Substance: LAMOTRIGINE
     Dosage: 300 MG QD
     Route: 048
     Dates: start: 20120611
  12. ABILIFY [Concomitant]
     Active Substance: ARIPIPRAZOLE
     Dosage: 6 MG QD
     Dates: start: 20191107

REACTIONS (7)
  - Dizziness [Unknown]
  - Blood pressure decreased [Recovering/Resolving]
  - Cardiovascular symptom [Unknown]
  - COVID-19 [Unknown]
  - Insomnia [Not Recovered/Not Resolved]
  - Restlessness [Unknown]
  - Dyspnoea [Recovering/Resolving]

NARRATIVE: CASE EVENT DATE: 20200109
